FAERS Safety Report 7688570 (Version 2)
Quarter: 2014Q1

REPORT INFORMATION
  Report Type: Spontaneous
  Country: US (occurrence: None)
  Receive Date: 20090723
  Receipt Date: 20140107
  Transmission Date: 20141002
  Serious: Yes (Hospitalization, Other)
  Sender: FDA-Public Use
  Company Number: 2009S1005572

PATIENT
  Age: 69 Year
  Sex: Female

DRUGS (2)
  1. EZ PREP (EZ PREP) (75 MILLILITRE (S), ORAL SOLUTION) [Suspect]
     Indication: COLONOSCOPY
     Route: 048
     Dates: start: 20060213, end: 20060214
  2. THYROID (THYROID) [Concomitant]

REACTIONS (9)
  - Blood creatinine increased [None]
  - Renal failure acute [None]
  - Nephrocalcinosis [None]
  - Acute phosphate nephropathy [None]
  - Abdominal pain [None]
  - Nausea [None]
  - Influenza like illness [None]
  - Large intestine perforation [None]
  - Cardiomegaly [None]
